FAERS Safety Report 8448135-0 (Version None)
Quarter: 2012Q2

REPORT INFORMATION
  Report Type: 
  Country: None (occurrence: None)
  Receive Date: 20120531
  Receipt Date: 20120518
  Transmission Date: 20120825
  Serious: Yes (Other)
  Sender: FDA-Public Use
  Company Number: 2011029193

PATIENT
  Sex: Female
  Weight: 118.2 kg

DRUGS (6)
  1. HIZENTRA [Suspect]
  2. HIZENTRA [Suspect]
  3. LIDOCAINE CREAM (LIDOCAINE) [Concomitant]
  4. HIZENTRA [Suspect]
  5. HIZENTRA [Suspect]
     Indication: HYPOGAMMAGLOBULINAEMIA
     Dosage: 75;ML 1/WEEK; 20;5 ML VIAL, SUBCUTANEOUS
     Route: 058
     Dates: start: 20110713
  6. HIZENTRA [Suspect]
     Indication: HYPOGAMMAGLOBULINAEMIA
     Dosage: 75;ML 1/WEEK; 20;5 ML VIAL, SUBCUTANEOUS
     Route: 058
     Dates: start: 20110702

REACTIONS (11)
  - NAUSEA [None]
  - RETCHING [None]
  - FATIGUE [None]
  - WRONG TECHNIQUE IN DRUG USAGE PROCESS [None]
  - OROPHARYNGEAL PAIN [None]
  - HEADACHE [None]
  - DIARRHOEA [None]
  - INFUSION SITE SWELLING [None]
  - VOMITING [None]
  - INFUSION SITE REACTION [None]
  - RESPIRATORY TRACT INFECTION [None]
